FAERS Safety Report 9117970 (Version 1)
Quarter: 2013Q1

REPORT INFORMATION
  Report Type: Spontaneous
  Country: US (occurrence: US)
  Receive Date: 20130208
  Receipt Date: 20130208
  Transmission Date: 20140127
  Serious: No
  Sender: FDA-Public Use
  Company Number: US-PFIZER INC-2013053361

PATIENT
  Age: 49 Year
  Sex: Female
  Weight: 61.22 kg

DRUGS (1)
  1. LIPITOR [Suspect]
     Indication: BLOOD CHOLESTEROL INCREASED
     Dosage: 10 MG, 1X/DAY
     Route: 048
     Dates: start: 2012

REACTIONS (4)
  - Blood cholesterol abnormal [Unknown]
  - Chromaturia [Unknown]
  - Myalgia [Unknown]
  - Fatigue [Unknown]
